FAERS Safety Report 8179609-8 (Version None)
Quarter: 2012Q1

REPORT INFORMATION
  Report Type: 
  Country: None (occurrence: None)
  Receive Date: 20120302
  Receipt Date: 20120224
  Transmission Date: 20120608
  Serious: Yes (Hospitalization)
  Sender: FDA-Public Use
  Company Number: 2012SP000585

PATIENT
  Age: 75 Year
  Sex: Male

DRUGS (7)
  1. LISINOPRIL [Concomitant]
     Indication: HYPERTENSION
  2. LUNESTA [Suspect]
     Indication: INSOMNIA
     Route: 048
     Dates: start: 20070101, end: 20091231
  3. OXYBUTYNIN [Concomitant]
     Indication: HYPERTONIC BLADDER
  4. LUNESTA [Suspect]
     Route: 048
     Dates: start: 20100102
  5. AMLODIPINE [Concomitant]
     Indication: HYPERTENSION
  6. AMBIEN [Concomitant]
     Indication: INSOMNIA
     Dates: start: 20091231, end: 20091231
  7. ZALEPLON [Concomitant]
     Indication: INSOMNIA
     Dates: start: 20100101, end: 20100101

REACTIONS (2)
  - PULMONARY EMBOLISM [None]
  - INSOMNIA [None]
